FAERS Safety Report 8546866-5 (Version None)
Quarter: 2012Q3

REPORT INFORMATION
  Report Type: 
  Country: None (occurrence: None)
  Receive Date: 20120727
  Receipt Date: 20120113
  Transmission Date: 20120928
  Serious: No
  Sender: FDA-Public Use
  Company Number: US-ASTRAZENECA-2012SE02683

PATIENT
  Age: 50 Year
  Sex: Female
  Weight: 40.8 kg

DRUGS (1)
  1. SEROQUEL XR [Suspect]
     Indication: DEPRESSION
     Dosage: 100MG-200MG TOTAL DAILY DOSAGE
     Route: 048

REACTIONS (5)
  - DIABETES MELLITUS [None]
  - ABDOMINAL PAIN LOWER [None]
  - ANXIETY [None]
  - DYSURIA [None]
  - DRUG PRESCRIBING ERROR [None]
